FAERS Safety Report 16182942 (Version 2)
Quarter: 2019Q2

REPORT INFORMATION
  Report Type: Report from Study
  Country: FR (occurrence: FR)
  Receive Date: 20190411
  Receipt Date: 20190603
  Transmission Date: 20190711
  Serious: Yes (Other)
  Sender: FDA-Public Use
  Company Number: FR-BRISTOL-MYERS SQUIBB COMPANY-BMS-2019-033164

PATIENT
  Age: 63 Year
  Sex: Male
  Weight: 52 kg

DRUGS (1)
  1. NIVOLUMAB [Suspect]
     Active Substance: NIVOLUMAB
     Indication: LUNG NEOPLASM MALIGNANT
     Dosage: 240 MILLIGRAM
     Route: 042
     Dates: start: 20180330

REACTIONS (3)
  - Back pain [Recovering/Resolving]
  - Weight decreased [Recovering/Resolving]
  - Cachexia [Unknown]

NARRATIVE: CASE EVENT DATE: 20190325
